FAERS Safety Report 21879323 (Version 1)
Quarter: 2023Q1

REPORT INFORMATION
  Report Type: Spontaneous
  Country: US (occurrence: US)
  Receive Date: 20230118
  Receipt Date: 20230118
  Transmission Date: 20230418
  Serious: Yes (Hospitalization)
  Sender: FDA-Public Use
  Company Number: US-BEH-2023154242

PATIENT
  Age: 58 Year
  Sex: Female

DRUGS (36)
  1. HIZENTRA [Suspect]
     Active Substance: HUMAN IMMUNOGLOBULIN G
     Indication: Immunodeficiency common variable
     Dosage: 10 GRAM/ 50 ML, QW
     Route: 058
     Dates: start: 20210115
  2. ALBUTEROL [Concomitant]
     Active Substance: ALBUTEROL
  3. ALBUTEROL [Concomitant]
     Active Substance: ALBUTEROL
  4. AMITRIPTYLINE [Concomitant]
     Active Substance: AMITRIPTYLINE
  5. AMLODIPINE [Concomitant]
     Active Substance: AMLODIPINE BESYLATE
  6. AMMONIUM LACTATE [Concomitant]
     Active Substance: AMMONIUM LACTATE
  7. TROVENTOL [THEOPHYLLINE] [Concomitant]
  8. AUGMENTIN ES-600 [Concomitant]
     Active Substance: AMOXICILLIN\CLAVULANATE POTASSIUM
  9. AZITHROMYCIN MONOHYDRATE [Concomitant]
     Active Substance: AZITHROMYCIN MONOHYDRATE
  10. CLINDAMYCIN [Concomitant]
     Active Substance: CLINDAMYCIN
  11. BETAMETHASONE\CLOTRIMAZOLE [Concomitant]
     Active Substance: BETAMETHASONE\CLOTRIMAZOLE
  12. CYCLOBENZAPRINE [Concomitant]
     Active Substance: CYCLOBENZAPRINE
  13. DICLOFENAC [Concomitant]
     Active Substance: DICLOFENAC
  14. EPINEPHRINE [Concomitant]
     Active Substance: EPINEPHRINE
  15. FAMOTIDINE [Concomitant]
     Active Substance: FAMOTIDINE
  16. HYDROXYCHLOROQUINE SULFATE [Concomitant]
     Active Substance: HYDROXYCHLOROQUINE SULFATE
  17. IPRATROPIUM [Concomitant]
     Active Substance: IPRATROPIUM
  18. IPRATROPIUM [Concomitant]
     Active Substance: IPRATROPIUM
  19. LOSARTAN POTASSIUM [Concomitant]
     Active Substance: LOSARTAN POTASSIUM
  20. LOSARTAN POTASSIUM [Concomitant]
     Active Substance: LOSARTAN POTASSIUM
  21. METHYLPREDNISOLONE [Concomitant]
     Active Substance: METHYLPREDNISOLONE
  22. OMEPRAZOLE [Concomitant]
     Active Substance: OMEPRAZOLE
  23. OMEPRAZOLE [Concomitant]
     Active Substance: OMEPRAZOLE
  24. PAROXETINE [Concomitant]
     Active Substance: PAROXETINE
  25. PIROXICAM [Concomitant]
     Active Substance: PIROXICAM
  26. PREDNISONE [Concomitant]
     Active Substance: PREDNISONE
  27. PROGESTERONE [Concomitant]
     Active Substance: PROGESTERONE
  28. PROGESTERONE [Concomitant]
     Active Substance: PROGESTERONE
  29. SYMBICORT [Concomitant]
     Active Substance: BUDESONIDE\FORMOTEROL FUMARATE DIHYDRATE
  30. THEOPHYLLINE [Concomitant]
     Active Substance: THEOPHYLLINE
  31. THEOPHYLLINE [Concomitant]
     Active Substance: THEOPHYLLINE
  32. TOBRAMYCIN [Concomitant]
     Active Substance: TOBRAMYCIN
  33. TRIAMCINOLON [TRIAMCINOLONE ACETONIDE] [Concomitant]
  34. VENTOLIN HFA [Concomitant]
     Active Substance: ALBUTEROL SULFATE
  35. VITAMIN D NOS [Concomitant]
     Active Substance: VITAMIN D NOS
  36. VITAMIN D2 [Concomitant]
     Active Substance: ERGOCALCIFEROL

REACTIONS (2)
  - Pneumonia [Recovered/Resolved]
  - Influenza [Recovered/Resolved]

NARRATIVE: CASE EVENT DATE: 20221218
